FAERS Safety Report 6170486-3 (Version None)
Quarter: 2009Q2

REPORT INFORMATION
  Report Type: 
  Country: None (occurrence: None)
  Receive Date: 20090428
  Receipt Date: 20090428
  Transmission Date: 20091009
  Serious: Yes (Hospitalization)
  Sender: FDA-Public Use
  Company Number: JP-B.I. PHARMACEUTICALS,INC./RIDGEFIELD-2009-BP-03131NB

PATIENT
  Sex: Female
  Weight: 47.3 kg

DRUGS (6)
  1. MICARDIS [Suspect]
     Indication: RENAL HYPERTENSION
     Dosage: 80MG
     Route: 048
     Dates: start: 20090128, end: 20090301
  2. ACTOS [Suspect]
     Dosage: 15MG
     Route: 048
     Dates: end: 20090312
  3. AMLODIPINE [Concomitant]
     Dosage: 10MG
     Route: 048
  4. FERRUM [Concomitant]
     Dosage: 305MG
     Route: 048
  5. BEZATOL [Concomitant]
     Dosage: 200MG
     Route: 048
  6. MERCKMEZIN [Concomitant]
     Dosage: 4G
     Route: 048

REACTIONS (2)
  - HYPOGLYCAEMIA [None]
  - LOSS OF CONSCIOUSNESS [None]
